FAERS Safety Report 5579312-4 (Version None)
Quarter: 2008Q1

REPORT INFORMATION
  Report Type: 
  Country: None (occurrence: None)
  Receive Date: 20080102
  Receipt Date: 20071221
  Transmission Date: 20080703
  Serious: Yes (Other)
  Sender: FDA-Public Use
  Company Number: GB-TEVA-165611ISR

PATIENT
  Sex: Male

DRUGS (1)
  1. GABAPENTIN [Suspect]
     Indication: BACK PAIN
     Route: 048
     Dates: start: 20070201

REACTIONS (1)
  - INTENTIONAL DRUG MISUSE [None]
